FAERS Safety Report 23145520 (Version 1)
Quarter: 2023Q4

REPORT INFORMATION
  Report Type: Spontaneous
  Country: BR (occurrence: BR)
  Receive Date: 20231103
  Receipt Date: 20231103
  Transmission Date: 20240109
  Serious: No
  Sender: FDA-Public Use
  Company Number: BR-SCALL-2023-AMR-089702

PATIENT
  Age: 32 Year
  Sex: Male

DRUGS (1)
  1. DUTASTERIDE [Suspect]
     Active Substance: DUTASTERIDE
     Indication: Capillary disorder
     Dosage: 1 DF, QD
     Route: 065
     Dates: start: 20230430

REACTIONS (2)
  - Alopecia [Unknown]
  - Drug ineffective [Unknown]
